FAERS Safety Report 6082755-6 (Version None)
Quarter: 2009Q1

REPORT INFORMATION
  Report Type: 
  Country: None (occurrence: None)
  Receive Date: 20090218
  Receipt Date: 20090207
  Transmission Date: 20090719
  Serious: Yes (Other)
  Sender: FDA-Public Use
  Company Number: US-JNJFOC-20090203147

PATIENT
  Sex: Female

DRUGS (3)
  1. TYLENOL WARMING COLD MULTI-SYMPTOM NIGHTTIME HONEY LEMON [Suspect]
     Indication: COUGH
  2. TYLENOL WARMING COLD MULTI-SYMPTOM NIGHTTIME HONEY LEMON [Suspect]
     Indication: INFLUENZA
  3. TYLENOL WARMING COLD MULTI-SYMPTOM NIGHTTIME HONEY LEMON [Suspect]
     Indication: NASOPHARYNGITIS

REACTIONS (3)
  - FEELING HOT [None]
  - SUFFOCATION FEELING [None]
  - SYNCOPE [None]
